FAERS Safety Report 10466438 (Version 1)
Quarter: 2014Q3

REPORT INFORMATION
  Report Type: Spontaneous
  Country: US (occurrence: None)
  Receive Date: 20140919
  Receipt Date: 20140919
  Transmission Date: 20150326
  Serious: Yes (Hospitalization, Disabling)
  Sender: FDA-Public Use
  Company Number: None

PATIENT
  Age: 69 Year
  Sex: Male
  Weight: 68.95 kg

DRUGS (1)
  1. TESTOSTERONE. [Suspect]
     Active Substance: TESTOSTERONE
     Dosage: N/A EVERY 5 MONTHS GIVEN INTO/UNDER THE SKIN

REACTIONS (3)
  - Myocardial infarction [None]
  - Prostatic specific antigen increased [None]
  - Product quality issue [None]

NARRATIVE: CASE EVENT DATE: 20140601
